FAERS Safety Report 6167346-0 (Version None)
Quarter: 2009Q2

REPORT INFORMATION
  Report Type: 
  Country: None (occurrence: None)
  Receive Date: 20090424
  Receipt Date: 20081023
  Transmission Date: 20091009
  Serious: Yes (Disabling, Other)
  Sender: FDA-Public Use
  Company Number: US-BAYER-200836662NA

PATIENT
  Age: 79 Year
  Sex: Male

DRUGS (2)
  1. LEUKINE [Suspect]
     Indication: PROSTATE CANCER METASTATIC
     Dates: start: 20080701, end: 20080801
  2. REVLIMID [Suspect]
     Indication: PROSTATE CANCER METASTATIC
     Dosage: TOTAL DAILY DOSE: 15 MG
     Route: 048
     Dates: start: 20080801, end: 20080822

REACTIONS (2)
  - BONE PAIN [None]
  - PROSTATE CANCER METASTATIC [None]
